FAERS Safety Report 13321056 (Version 1)
Quarter: 2017Q1

REPORT INFORMATION
  Report Type: Other
  Country: IT (occurrence: IT)
  Receive Date: 20170310
  Receipt Date: 20170310
  Transmission Date: 20170428
  Serious: Yes (Other)
  Sender: FDA-Public Use
  Company Number: IT-EMD SERONO-8147062

PATIENT
  Age: 25 Year
  Sex: Female

DRUGS (1)
  1. INTERFERON BETA-1A [Suspect]
     Active Substance: INTERFERON BETA-1A
     Indication: RELAPSING-REMITTING MULTIPLE SCLEROSIS
     Dosage: HIGH DOSAGE
     Route: 058

REACTIONS (3)
  - Systemic scleroderma [Recovering/Resolving]
  - Injection site reaction [Unknown]
  - Influenza like illness [Unknown]
